FAERS Safety Report 5484074-5 (Version None)
Quarter: 2007Q4

REPORT INFORMATION
  Report Type: 
  Country: None (occurrence: None)
  Receive Date: 20071009
  Receipt Date: 20071009
  Transmission Date: 20080405
  Serious: No
  Sender: FDA-Public Use
  Company Number: None

PATIENT
  Sex: Female
  Weight: 15.6 kg

DRUGS (1)
  1. CARBOPLATIN [Suspect]
     Dosage: 220 MG

REACTIONS (3)
  - ANGIOEDEMA [None]
  - IRRITABILITY [None]
  - RESPIRATORY DISTRESS [None]
